FAERS Safety Report 7723292 (Version 3)
Quarter: 2013Q3

REPORT INFORMATION
  Report Type: Spontaneous
  Country: NO (occurrence: None)
  Receive Date: 20101122
  Receipt Date: 20130904
  Transmission Date: 20140515
  Serious: Yes (Hospitalization)
  Sender: FDA-Public Use
  Company Number: 752802

PATIENT
  Age: 9 Year
  Sex: Female
  Weight: 34.8 kg

DRUGS (20)
  1. VINCRISTINE SULFATE [Suspect]
     Indication: NEOPLASM MALIGNANT
     Dosage: 1.9 MG MILLIGRAM(S) INTRAVENOUS
     Route: 042
     Dates: start: 20100217, end: 20100217
  2. VINCRISTINE SULFATE [Suspect]
     Indication: NEOPLASM MALIGNANT
     Dosage: 1.9 MG MILLIGRAM(S) INTRAVENOUS
     Route: 042
     Dates: start: 20100217, end: 20100217
  3. APREPITANT [Suspect]
     Indication: PROPHYLAXIS
     Dosage: 89 MG MILLIGRAM(S) ORAL
     Route: 048
     Dates: start: 20100217, end: 20100217
  4. ONDANSETRON [Suspect]
     Indication: NAUSEA
     Dosage: 6 MG MILLIGRAM(S), INTRAVENOUS
     Route: 042
     Dates: start: 20100217, end: 20100217
  5. ONDANSETRON [Suspect]
     Indication: PROPHYLAXIS
     Dosage: 6 MG MILLIGRAM(S), INTRAVENOUS
     Route: 042
     Dates: start: 20100217, end: 20100217
  6. DOXORUBICIN HYDROCHLORIDE [Suspect]
     Indication: NEOPLASM MALIGNANT
     Dosage: 38 MG MILLIGRAM(S) INTRAVENOUS
     Route: 042
     Dates: start: 20100217, end: 20100218
  7. DOXORUBICIN HYDROCHLORIDE [Suspect]
     Indication: NEOPLASM MALIGNANT
     Dosage: 38 MG MILLIGRAM(S) INTRAVENOUS
     Route: 042
     Dates: start: 20100217, end: 20100218
  8. DACTINOMYCIN [Suspect]
     Indication: NEOPLASM MALIGNANT
     Dosage: 1.9 MG MILLIGRAM(S) INTRAVENOUS
     Route: 042
     Dates: start: 20100217, end: 20100217
  9. DACTINOMYCIN [Suspect]
     Indication: NEOPLASM MALIGNANT
     Dosage: 1.9 MG MILLIGRAM(S) INTRAVENOUS
     Route: 042
     Dates: start: 20100217, end: 20100217
  10. DEXAMETHASONE [Concomitant]
  11. IMPORTAL [Concomitant]
  12. SULFAMETHOXAZOLE [Concomitant]
  13. OMEPRAZOLE [Concomitant]
  14. RANTIDINE [Concomitant]
  15. IFOSFAMIDE [Concomitant]
  16. ONDANSETRON [Concomitant]
  17. PENICILLIN G /00000901/ [Concomitant]
  18. GARAMYCIN [Concomitant]
  19. FLUCONAZOLE [Concomitant]
  20. NEUPOGEN [Concomitant]

REACTIONS (9)
  - Febrile neutropenia [None]
  - Vomiting [None]
  - Decreased appetite [None]
  - Oral pain [None]
  - Pallor [None]
  - Fatigue [None]
  - Nausea [None]
  - Leukopenia [None]
  - C-reactive protein increased [None]
